FAERS Safety Report 13387673 (Version 1)
Quarter: 2017Q1

REPORT INFORMATION
  Report Type: Other
  Country: FR (occurrence: FR)
  Receive Date: 20170330
  Receipt Date: 20170330
  Transmission Date: 20170429
  Serious: Yes (Hospitalization, Other)
  Sender: FDA-Public Use
  Company Number: FR-ASTELLAS-2017US011680

PATIENT
  Age: 4 Year
  Sex: Male

DRUGS (9)
  1. CORTANCYL [Suspect]
     Active Substance: PREDNISONE
     Route: 048
     Dates: start: 20161108
  2. CORTANCYL [Suspect]
     Active Substance: PREDNISONE
     Route: 048
     Dates: start: 20160912, end: 20161016
  3. MODIGRAF [Suspect]
     Active Substance: TACROLIMUS
     Dosage: 1 MG, TWICE DAILY (IN THE MORNING AND AT NIGHT)
     Route: 048
     Dates: start: 20161108
  4. CELLCEPT [Suspect]
     Active Substance: MYCOPHENOLATE MOFETIL\MYCOPHENOLATE MOFETIL HYDROCHLORIDE
     Indication: RENAL TRANSPLANT
     Dosage: 0.8 ML, TWICE DAILY (IN THE MORNING AND AT NIGHT)
     Route: 048
  5. CORTANCYL [Suspect]
     Active Substance: PREDNISONE
     Indication: RENAL TRANSPLANT
     Route: 048
     Dates: start: 201607
  6. SODIUM BICARBONATE. [Concomitant]
     Active Substance: SODIUM BICARBONATE
     Indication: PRODUCT USED FOR UNKNOWN INDICATION
     Dosage: UNK UNK, UNKNOWN FREQ.
     Route: 065
  7. FLIXOTIDE [Concomitant]
     Active Substance: FLUTICASONE PROPIONATE
     Indication: PRODUCT USED FOR UNKNOWN INDICATION
     Dosage: UNK UNK, UNKNOWN FREQ.
     Route: 065
  8. MODIGRAF [Suspect]
     Active Substance: TACROLIMUS
     Indication: RENAL TRANSPLANT
     Dosage: 1.4 MG, TWICE DAILY (IN THE MORNING AND AT NIGHT)
     Route: 048
     Dates: start: 201607
  9. FERROSTRANE [Concomitant]
     Active Substance: SODIUM FEREDETATE
     Indication: PRODUCT USED FOR UNKNOWN INDICATION
     Dosage: UNK UNK, UNKNOWN FREQ.
     Route: 065

REACTIONS (5)
  - Kidney fibrosis [Unknown]
  - Overdose [Recovering/Resolving]
  - Renal tubular atrophy [Unknown]
  - Blood creatinine increased [Unknown]
  - Epstein-Barr virus infection [Recovering/Resolving]

NARRATIVE: CASE EVENT DATE: 201607
